FAERS Safety Report 9236989 (Version 1)
Quarter: 2013Q2

REPORT INFORMATION
  Report Type: Spontaneous
  Country: US (occurrence: US)
  Receive Date: 20130417
  Receipt Date: 20130417
  Transmission Date: 20140414
  Serious: No
  Sender: FDA-Public Use
  Company Number: US-009507513-1304USA005615

PATIENT
  Sex: 0

DRUGS (7)
  1. TEMODAR [Suspect]
     Indication: NEUROBLASTOMA
  2. BUSULFAN [Concomitant]
     Indication: NEUROBLASTOMA
     Dosage: UNK, Q6H
     Route: 042
  3. MELPHALAN [Concomitant]
     Indication: NEUROBLASTOMA
     Dosage: 140 MG/M2, UNK
     Route: 042
  4. POTASSIUM IODIDE [Concomitant]
     Indication: PROPHYLAXIS
  5. POTASSIUM PERCHLORATE [Concomitant]
     Indication: PROPHYLAXIS
  6. GRANULOCYTE COLONY STIMULATING FACTOR (UNSPECIFIED) [Concomitant]
     Dosage: 5 MICROGRAM PER KILOGRAM, UNK
     Route: 042
  7. IRINOTECAN HYDROCHLORIDE [Concomitant]

REACTIONS (1)
  - No therapeutic response [Unknown]
